FAERS Safety Report 7002045-4 (Version None)
Quarter: 2010Q3

REPORT INFORMATION
  Report Type: 
  Country: None (occurrence: None)
  Receive Date: 20100902
  Receipt Date: 20090925
  Transmission Date: 20110219
  Serious: Yes (Other)
  Sender: FDA-Public Use
  Company Number: 210651USA

PATIENT
  Sex: Female

DRUGS (2)
  1. METOCLOPRAMIDE [Suspect]
     Indication: OESOPHAGEAL INJURY
     Dates: start: 19910101, end: 20020101
  2. METOCLOPRAMIDE [Suspect]
     Indication: RADIATION INJURY
     Dates: start: 19910101, end: 20020101

REACTIONS (1)
  - TARDIVE DYSKINESIA [None]
